FAERS Safety Report 7751374-5 (Version None)
Quarter: 2011Q3

REPORT INFORMATION
  Report Type: 
  Country: None (occurrence: None)
  Receive Date: 20110914
  Receipt Date: 20110126
  Transmission Date: 20111222
  Serious: No
  Sender: FDA-Public Use
  Company Number: US-BAYER-2011-011370

PATIENT
  Sex: Female

DRUGS (1)
  1. MAGNEVIST [Suspect]
     Indication: NUCLEAR MAGNETIC RESONANCE IMAGING
     Dosage: 15 ML, LEFT ANTECUBITAL, INJECTED MANUALLY
     Route: 042
     Dates: start: 20110126, end: 20110126

REACTIONS (4)
  - PRURITUS [None]
  - CHEST DISCOMFORT [None]
  - SNEEZING [None]
  - NASAL CONGESTION [None]
